FAERS Safety Report 10068748 (Version 1)
Quarter: 2014Q2

REPORT INFORMATION
  Report Type: Spontaneous
  Country: US (occurrence: US)
  Receive Date: 20140409
  Receipt Date: 20140409
  Transmission Date: 20141212
  Serious: No
  Sender: FDA-Public Use
  Company Number: US-009507513-1404USA004804

PATIENT
  Age: 59 Year
  Sex: Female

DRUGS (3)
  1. DULERA [Suspect]
     Indication: ASTHMA
     Dosage: (200/5 MCG) 1 PUFF, BID
     Route: 055
     Dates: start: 201307
  2. PROAIR (ALBUTEROL SULFATE) [Concomitant]
  3. EFFEXOR [Concomitant]

REACTIONS (3)
  - Cough [Recovered/Resolved]
  - Drug dose omission [Unknown]
  - Product quality issue [Unknown]
